FAERS Safety Report 8006450-9 (Version None)
Quarter: 2011Q4

REPORT INFORMATION
  Report Type: 
  Country: None (occurrence: None)
  Receive Date: 20111226
  Receipt Date: 20111202
  Transmission Date: 20120403
  Serious: Yes (Other)
  Sender: FDA-Public Use
  Company Number: PHFR2011GB006973

PATIENT
  Sex: Female
  Weight: 43 kg

DRUGS (1)
  1. ZOLEDRONOC ACID [Suspect]
     Dosage: 5 MG
     Route: 042

REACTIONS (8)
  - HYPOKINESIA [None]
  - BONE SWELLING [None]
  - MALAISE [None]
  - MYALGIA [None]
  - INFLUENZA LIKE ILLNESS [None]
  - PARALYSIS [None]
  - SWELLING [None]
  - CALCINOSIS [None]
